FAERS Safety Report 16110855 (Version 1)
Quarter: 2019Q1

REPORT INFORMATION
  Report Type: Spontaneous
  Country: FR (occurrence: FR)
  Receive Date: 20190325
  Receipt Date: 20190325
  Transmission Date: 20190418
  Serious: Yes (Hospitalization)
  Sender: FDA-Public Use
  Company Number: FR-ACCORD-114840

PATIENT
  Age: 28 Year
  Sex: Male

DRUGS (7)
  1. ALPRAZOLAM. [Suspect]
     Active Substance: ALPRAZOLAM
     Route: 048
     Dates: start: 20180213, end: 20180213
  2. RAMIPRIL. [Suspect]
     Active Substance: RAMIPRIL
     Route: 048
     Dates: start: 20180213, end: 20180213
  3. PNEUMOREL [Suspect]
     Active Substance: FENSPIRIDE HYDROCHLORIDE
     Route: 048
     Dates: start: 20180213, end: 20180213
  4. DOXYCYCLINE. [Suspect]
     Active Substance: DOXYCYCLINE
     Route: 048
     Dates: start: 20180213, end: 20180213
  5. DAFALGAN CODEINE [Suspect]
     Active Substance: ACETAMINOPHEN\CODEINE PHOSPHATE
     Route: 048
     Dates: start: 20180213, end: 20180213
  6. PARACETAMOL [Suspect]
     Active Substance: ACETAMINOPHEN
     Route: 048
     Dates: start: 20180213, end: 20180213
  7. AMOXICILLIN/CLAVULANIC ACID [Suspect]
     Active Substance: AMOXICILLIN\CLAVULANIC ACID
     Route: 048
     Dates: start: 20180213, end: 20180213

REACTIONS (3)
  - Overdose [Unknown]
  - Poisoning deliberate [Unknown]
  - Arrhythmia [Recovered/Resolved]

NARRATIVE: CASE EVENT DATE: 20180213
